FAERS Safety Report 15341552 (Version 2)
Quarter: 2018Q4

REPORT INFORMATION
  Report Type: Spontaneous
  Country: US (occurrence: US)
  Receive Date: 20180901
  Receipt Date: 20181120
  Transmission Date: 20190204
  Serious: Yes (Other)
  Sender: FDA-Public Use
  Company Number: PHEH2018US035284

PATIENT
  Sex: Female

DRUGS (2)
  1. VOTRIENT [Suspect]
     Active Substance: PAZOPANIB HYDROCHLORIDE
     Indication: MALIGNANT NEOPLASM OF AURICULAR CARTILAGE
     Dosage: 600 MG, QD
     Route: 048
     Dates: start: 20180725
  2. VOTRIENT [Suspect]
     Active Substance: PAZOPANIB HYDROCHLORIDE
     Indication: BONE NEOPLASM

REACTIONS (6)
  - Malignant neoplasm progression [Unknown]
  - Abdominal pain upper [Unknown]
  - Malignant neoplasm of auricular cartilage [Unknown]
  - Bone neoplasm [Unknown]
  - Product use in unapproved indication [Unknown]
  - Nausea [Unknown]
